FAERS Safety Report 17845898 (Version 1)
Quarter: 2020Q2

REPORT INFORMATION
  Report Type: Spontaneous
  Country: US (occurrence: US)
  Receive Date: 20200530
  Receipt Date: 20200530
  Transmission Date: 20200714
  Serious: Yes (Disabling)
  Sender: FDA-Public Use
  Company Number: None

PATIENT
  Age: 47 Year
  Sex: Female
  Weight: 45 kg

DRUGS (5)
  1. GLUTAMINE [Concomitant]
     Active Substance: GLUTAMINE
  2. MAGNESIUM [Concomitant]
     Active Substance: MAGNESIUM
  3. NP THYROID [Suspect]
     Active Substance: LEVOTHYROXINE\LIOTHYRONINE
     Indication: AUTOIMMUNE THYROIDITIS
     Route: 048
     Dates: start: 20200329, end: 20200528
  4. NALTREXONE LOW DOSE [Concomitant]
  5. B VITAMINS [Concomitant]
     Active Substance: CYANOCOBALAMIN\DEXPANTHENOL\NIACINAMIDE\PYRIDOXINE HYDROCHLORIDE\RIBOFLAVIN 5^-PHOSPHATE SODIUM\THIAMINE HYDROCHLORIDE\VITAMIN B COMPLEX

REACTIONS (4)
  - Thyroxine free decreased [None]
  - Heart rate increased [None]
  - Weight decreased [None]
  - Tri-iodothyronine free increased [None]

NARRATIVE: CASE EVENT DATE: 20200522
